FAERS Safety Report 17316578 (Version 1)
Quarter: 2020Q1

REPORT INFORMATION
  Report Type: Spontaneous
  Country: GB (occurrence: GB)
  Receive Date: 20200124
  Receipt Date: 20200124
  Transmission Date: 20200409
  Serious: Yes (Hospitalization, Other)
  Sender: FDA-Public Use
  Company Number: GB-AMGEN-GBRSP2020007590

PATIENT
  Age: 56 Year
  Sex: Female

DRUGS (19)
  1. DOCETAXEL. [Suspect]
     Active Substance: DOCETAXEL
     Indication: BREAST CANCER
     Dosage: 150 MILLIGRAM, Q3WK
     Route: 042
     Dates: start: 20151127, end: 20160308
  2. DOCETAXEL. [Suspect]
     Active Substance: DOCETAXEL
     Dosage: 150 MILLIGRAM, Q3WK
     Route: 042
     Dates: start: 20151217
  3. DOMPERIDONE [Concomitant]
     Active Substance: DOMPERIDONE
     Dosage: 10 MILLIGRAM
     Route: 048
     Dates: start: 20151126
  4. PERTUZUMAB. [Suspect]
     Active Substance: PERTUZUMAB
     Dosage: 420 MILLIGRAM, Q3WK
     Route: 042
     Dates: start: 20151215
  5. TRASTUZUMAB EMTANSINE [Suspect]
     Active Substance: ADO-TRASTUZUMAB EMTANSINE
     Dosage: UNK
     Route: 042
     Dates: start: 20151217
  6. LETROZOLE. [Suspect]
     Active Substance: LETROZOLE
     Indication: BREAST CANCER
     Dosage: 2.5 MILLIGRAM
     Route: 048
     Dates: start: 20150709, end: 20151015
  7. DEXAMETHASONE. [Concomitant]
     Active Substance: DEXAMETHASONE
     Dosage: 16 MILLIGRAM, QD
     Route: 048
     Dates: start: 20151125
  8. COLECALCIFEROL [Concomitant]
     Active Substance: CHOLECALCIFEROL
     Indication: PULMONARY EMBOLISM
     Dosage: 20000 UNIT, QD
     Route: 048
     Dates: start: 20151203
  9. LOPERAMIDE [Concomitant]
     Active Substance: LOPERAMIDE
     Dosage: 2 MILLIGRAM
     Route: 048
     Dates: start: 20151126
  10. CALCICHEW [Concomitant]
     Active Substance: CALCIUM CARBONATE
     Dosage: 1.25 GRAM, QD
     Route: 048
     Dates: start: 20150723
  11. PERTUZUMAB. [Suspect]
     Active Substance: PERTUZUMAB
     Indication: BREAST CANCER
     Dosage: 840 MILLIGRAM
     Route: 042
     Dates: start: 20151125, end: 20151125
  12. TRASTUZUMAB EMTANSINE [Suspect]
     Active Substance: ADO-TRASTUZUMAB EMTANSINE
     Indication: BREAST CANCER
     Dosage: 672 MILLIGRAM, Q3WK
     Route: 042
     Dates: start: 20151126
  13. XGEVA [Suspect]
     Active Substance: DENOSUMAB
     Dosage: 150 MILLIGRAM, Q3WK
     Route: 042
     Dates: start: 20151126
  14. DALTEPARIN [Concomitant]
     Active Substance: DALTEPARIN
     Dosage: 10000 UNITS, QD
     Route: 058
     Dates: start: 20160421
  15. XGEVA [Suspect]
     Active Substance: DENOSUMAB
     Indication: BREAST CANCER
     Dosage: 120 MILLIGRAM, Q4WK
     Route: 058
     Dates: start: 20150723
  16. XGEVA [Suspect]
     Active Substance: DENOSUMAB
     Dosage: 70 MILLIGRAM, MINUTES
     Route: 058
     Dates: start: 20150820
  17. TRASTUZUMAB. [Suspect]
     Active Substance: TRASTUZUMAB
     Indication: BREAST CANCER
     Dosage: 672 MILLIGRAM, Q3WK
     Route: 042
     Dates: start: 20151127
  18. LEVOFLOXACIN. [Concomitant]
     Active Substance: LEVOFLOXACIN
     Dosage: 500 MILLIGRAM
     Route: 048
     Dates: start: 20151130
  19. FLUCONAZOLE. [Concomitant]
     Active Substance: FLUCONAZOLE
     Dosage: 50 MILLIGRAM
     Route: 048
     Dates: start: 20151130

REACTIONS (9)
  - Rectal haemorrhage [Recovered/Resolved]
  - Febrile neutropenia [Recovered/Resolved]
  - Headache [Recovered/Resolved]
  - Nausea [Unknown]
  - Oropharyngeal pain [Recovered/Resolved]
  - Constipation [Unknown]
  - Neurotoxicity [Unknown]
  - Alopecia [Recovered/Resolved]
  - Stomatitis [Unknown]

NARRATIVE: CASE EVENT DATE: 20151202
